FAERS Safety Report 9795297 (Version 3)
Quarter: 2014Q1

REPORT INFORMATION
  Report Type: Spontaneous
  Country: CA (occurrence: CA)
  Receive Date: 20140103
  Receipt Date: 20140205
  Transmission Date: 20141002
  Serious: Yes (Other)
  Sender: FDA-Public Use
  Company Number: CA-ROCHE-1246843

PATIENT
  Sex: Male
  Weight: 99.8 kg

DRUGS (6)
  1. RITUXAN [Suspect]
     Indication: RHEUMATOID ARTHRITIS
     Dosage: LAST DOSE RECEIVED IN 2007.
     Route: 042
  2. METHOTREXATE [Concomitant]
  3. FOLIC ACID [Concomitant]
  4. AMLODIPINE [Concomitant]
  5. TYLENOL [Concomitant]
  6. ALEVE [Concomitant]

REACTIONS (3)
  - Rheumatoid arthritis [Not Recovered/Not Resolved]
  - Bone loss [Unknown]
  - Blood pressure increased [Unknown]
